FAERS Safety Report 19582320 (Version 1)
Quarter: 2021Q3

REPORT INFORMATION
  Report Type: Spontaneous
  Country: DE (occurrence: DE)
  Receive Date: 20210720
  Receipt Date: 20210720
  Transmission Date: 20211014
  Serious: Yes (Other)
  Sender: FDA-Public Use
  Company Number: DE-ROCHE-2872923

PATIENT
  Age: 28 Year
  Sex: Male

DRUGS (1)
  1. RITUXAN [Suspect]
     Active Substance: RITUXIMAB
     Indication: DEMYELINATION
     Route: 041
     Dates: start: 201904

REACTIONS (6)
  - Fatigue [Not Recovered/Not Resolved]
  - Blister [Recovered/Resolved]
  - Off label use [Unknown]
  - Herpes zoster [Recovered/Resolved]
  - Inflammation [Recovered/Resolved]
  - Facial paralysis [Not Recovered/Not Resolved]

NARRATIVE: CASE EVENT DATE: 201904
